FAERS Safety Report 17652803 (Version 1)
Quarter: 2020Q2

REPORT INFORMATION
  Report Type: Spontaneous
  Country: US (occurrence: US)
  Receive Date: 20200409
  Receipt Date: 20200409
  Transmission Date: 20200713
  Serious: Yes (Other)
  Sender: FDA-Public Use
  Company Number: US-BAUSCH-BL-2020-001335

PATIENT
  Age: 66 Year
  Sex: Male

DRUGS (1)
  1. OCEAN SALINE NASAL SPRAY [Suspect]
     Active Substance: SODIUM CHLORIDE
     Indication: EPISTAXIS
     Dosage: USED THE PRODUCT FOR YEARS
     Route: 045

REACTIONS (3)
  - Bacterial rhinitis [Unknown]
  - Product lot number issue [Unknown]
  - Lung disorder [Unknown]

NARRATIVE: CASE EVENT DATE: 2019
